FAERS Safety Report 12837709 (Version 1)
Quarter: 2016Q4

REPORT INFORMATION
  Report Type: Spontaneous
  Country: US (occurrence: US)
  Receive Date: 20161012
  Receipt Date: 20161012
  Transmission Date: 20170207
  Serious: No
  Sender: FDA-Public Use
  Company Number: US-009507513-1610USA004279

PATIENT
  Age: 86 Year
  Sex: Female

DRUGS (5)
  1. TOPROL XL [Concomitant]
     Active Substance: METOPROLOL SUCCINATE
  2. TICE BCG [Suspect]
     Active Substance: BACILLUS CALMETTE-GUERIN SUBSTRAIN TICE LIVE ANTIGEN
     Indication: BLADDER CANCER
     Dosage: UNK
     Route: 043
     Dates: start: 20160817
  3. LOSARTAN POTASSIUM. [Concomitant]
     Active Substance: LOSARTAN POTASSIUM
  4. TICE BCG [Suspect]
     Active Substance: BACILLUS CALMETTE-GUERIN SUBSTRAIN TICE LIVE ANTIGEN
     Dosage: UNK
     Route: 043
     Dates: start: 20160721
  5. SENOKOT [Concomitant]
     Active Substance: SENNOSIDES

REACTIONS (4)
  - Underdose [Unknown]
  - Bladder spasm [Recovered/Resolved]
  - Extra dose administered [Unknown]
  - Expulsion of medication [Unknown]

NARRATIVE: CASE EVENT DATE: 20160817
